FAERS Safety Report 4786989-X (Version None)
Quarter: 2005Q4

REPORT INFORMATION
  Report Type: 
  Country: None (occurrence: None)
  Receive Date: 20051004
  Receipt Date: 20041203
  Transmission Date: 20060501
  Serious: Yes (Other)
  Sender: FDA-Public Use
  Company Number: GB-GLAXOSMITHKLINE-B0359764A

PATIENT
  Sex: Female

DRUGS (3)
  1. SEROXAT [Suspect]
     Route: 065
  2. THIORIDAZINE [Concomitant]
     Dosage: 25MG THREE TIMES PER DAY
     Route: 065
     Dates: start: 19970401
  3. CLOMIPRAMINE HCL [Concomitant]
     Route: 065

REACTIONS (10)
  - ANXIETY [None]
  - COMPLETED SUICIDE [None]
  - DIZZINESS [None]
  - FATIGUE [None]
  - FEELING COLD [None]
  - ILL-DEFINED DISORDER [None]
  - LOSS OF CONSCIOUSNESS [None]
  - PALPITATIONS [None]
  - TREMOR [None]
  - WEIGHT INCREASED [None]
